FAERS Safety Report 18899949 (Version 5)
Quarter: 2025Q1

REPORT INFORMATION
  Report Type: Spontaneous
  Country: US (occurrence: US)
  Receive Date: 20210216
  Receipt Date: 20250328
  Transmission Date: 20250409
  Serious: No
  Sender: PFIZER
  Company Number: US-PFIZER INC-2020111111

PATIENT
  Age: 79 Year
  Sex: Female
  Weight: 54.43 kg

DRUGS (7)
  1. XELJANZ [Suspect]
     Active Substance: TOFACITINIB CITRATE
     Dates: start: 2018
  2. PROLIA [Concomitant]
     Active Substance: DENOSUMAB
  3. ACETAMINOPHEN [Concomitant]
     Active Substance: ACETAMINOPHEN
  4. CITALOPRAM [Concomitant]
     Active Substance: CITALOPRAM
  5. COMBIGAN [Concomitant]
     Active Substance: BRIMONIDINE TARTRATE\TIMOLOL MALEATE
  6. LATANOPROST [Concomitant]
     Active Substance: LATANOPROST
  7. RALOXIFENE [Concomitant]
     Active Substance: RALOXIFENE

REACTIONS (3)
  - Energy increased [Unknown]
  - Pain [Unknown]
  - Cough [Unknown]
